FAERS Safety Report 12289138 (Version 1)
Quarter: 2016Q2

REPORT INFORMATION
  Report Type: Report from Study
  Country: HK (occurrence: HK)
  Receive Date: 20160421
  Receipt Date: 20160421
  Transmission Date: 20160815
  Serious: Yes (Death, Other)
  Sender: FDA-Public Use
  Company Number: HK-BAXTER-2016BAX020737

PATIENT
  Sex: Female

DRUGS (6)
  1. ETOPOSIDE. [Suspect]
     Active Substance: ETOPOSIDE
     Indication: ACUTE LYMPHOCYTIC LEUKAEMIA RECURRENT
     Route: 065
  2. ENDOXAN FOR INJ IG [Suspect]
     Active Substance: CYCLOPHOSPHAMIDE
     Indication: ACUTE LYMPHOCYTIC LEUKAEMIA RECURRENT
     Route: 065
  3. ENDOXAN FOR INJ IG [Suspect]
     Active Substance: CYCLOPHOSPHAMIDE
     Indication: ACUTE LYMPHOCYTIC LEUKAEMIA REFRACTORY
  4. CLOFARABINE [Suspect]
     Active Substance: CLOFARABINE
     Indication: ACUTE LYMPHOCYTIC LEUKAEMIA REFRACTORY
  5. ETOPOSIDE. [Suspect]
     Active Substance: ETOPOSIDE
     Indication: ACUTE LYMPHOCYTIC LEUKAEMIA REFRACTORY
  6. CLOFARABINE [Suspect]
     Active Substance: CLOFARABINE
     Indication: ACUTE LYMPHOCYTIC LEUKAEMIA RECURRENT
     Route: 065

REACTIONS (4)
  - Thrombocytopenia [Unknown]
  - Remission not achieved [Not Recovered/Not Resolved]
  - Disease progression [Fatal]
  - Febrile neutropenia [Unknown]
